FAERS Safety Report 4899978-1 (Version None)
Quarter: 2006Q1

REPORT INFORMATION
  Report Type: 
  Country: None (occurrence: None)
  Receive Date: 20060131
  Receipt Date: 20060120
  Transmission Date: 20060701
  Serious: Yes (Other)
  Sender: FDA-Public Use
  Company Number: 2006010662

PATIENT
  Sex: Female

DRUGS (1)
  1. LIPITOR [Suspect]
     Indication: BLOOD CHOLESTEROL
     Dosage: 10 MG 10 MG,1 IN 1 D) , ORAL
     Route: 048
     Dates: start: 19980101

REACTIONS (3)
  - BLOOD CHOLESTEROL INCREASED [None]
  - CONSTIPATION [None]
  - SPINAL FRACTURE [None]
